FAERS Safety Report 18151729 (Version 2)
Quarter: 2020Q3

REPORT INFORMATION
  Report Type: Spontaneous
  Country: JP (occurrence: JP)
  Receive Date: 20200814
  Receipt Date: 20200921
  Transmission Date: 20201103
  Serious: Yes (Other)
  Sender: FDA-Public Use
  Company Number: JP-GILEAD-2020-0450599

PATIENT
  Age: 79 Year
  Sex: Female
  Weight: 51.3 kg

DRUGS (1)
  1. VEMLIDY [Suspect]
     Active Substance: TENOFOVIR ALAFENAMIDE FUMARATE
     Indication: CHRONIC HEPATITIS B
     Dosage: 25 MG, QD
     Route: 048
     Dates: start: 20191023, end: 20191226

REACTIONS (2)
  - Hepatic enzyme increased [Recovering/Resolving]
  - Hepatitis B DNA increased [Unknown]

NARRATIVE: CASE EVENT DATE: 20191217
